FAERS Safety Report 10088387 (Version 1)
Quarter: 2014Q2

REPORT INFORMATION
  Report Type: Spontaneous
  Country: PR (occurrence: PR)
  Receive Date: 20140421
  Receipt Date: 20140421
  Transmission Date: 20141212
  Serious: No
  Sender: FDA-Public Use
  Company Number: PR-BIOGENIDEC-2014BI031004

PATIENT
  Age: 64 Year
  Sex: Female

DRUGS (4)
  1. TECFIDERA [Suspect]
     Indication: MULTIPLE SCLEROSIS
     Route: 048
     Dates: start: 20140205
  2. IBANDRONATE SODIUM [Concomitant]
  3. ATORVASTATIN CALCIUM [Concomitant]
  4. ARICEPT [Concomitant]

REACTIONS (1)
  - Limb discomfort [Unknown]
